FAERS Safety Report 7897309-6 (Version None)
Quarter: 2011Q4

REPORT INFORMATION
  Report Type: 
  Country: None (occurrence: None)
  Receive Date: 20111107
  Receipt Date: 20111028
  Transmission Date: 20120403
  Serious: Yes (Other)
  Sender: FDA-Public Use
  Company Number: PHHY2011US59628

PATIENT
  Sex: Female

DRUGS (8)
  1. WELLBUTRIN [Concomitant]
  2. HYDROCODONE BITARTRATE [Concomitant]
  3. DICLOFENAC SODIUM [Concomitant]
  4. RECLAST [Suspect]
     Dosage: UNK UKN, UNK
     Route: 042
     Dates: start: 20090713
  5. FLECTOR [Concomitant]
  6. SOMA [Concomitant]
  7. EFFEXOR [Concomitant]
  8. DURAGESIC-100 [Concomitant]

REACTIONS (9)
  - TOOTH LOSS [None]
  - MEMORY IMPAIRMENT [None]
  - BONE DISORDER [None]
  - MUSCULOSKELETAL DISCOMFORT [None]
  - BACK DISORDER [None]
  - MUSCULOSKELETAL CHEST PAIN [None]
  - MUSCLE SPASMS [None]
  - PAIN IN EXTREMITY [None]
  - OSTEONECROSIS OF JAW [None]
